FAERS Safety Report 7423842-7 (Version None)
Quarter: 2011Q2

REPORT INFORMATION
  Report Type: 
  Country: None (occurrence: None)
  Receive Date: 20110419
  Receipt Date: 20110410
  Transmission Date: 20111010
  Serious: Yes (Other)
  Sender: FDA-Public Use
  Company Number: PHHY2011US30304

PATIENT
  Sex: Female

DRUGS (3)
  1. NEXIUM [Concomitant]
     Indication: GASTROOESOPHAGEAL REFLUX DISEASE
     Dosage: 40 MG, QD
     Route: 048
  2. GLEEVEC [Suspect]
     Indication: MASTOCYTOSIS
     Dosage: 400 MG, UNK
  3. EFFEXOR [Concomitant]
     Indication: ANXIETY
     Dosage: 750 MG, QD

REACTIONS (2)
  - MASTOCYTOSIS [None]
  - DISEASE PROGRESSION [None]
